FAERS Safety Report 5454525-0 (Version None)
Quarter: 2007Q3

REPORT INFORMATION
  Report Type: 
  Country: None (occurrence: None)
  Receive Date: 20070917
  Receipt Date: 20060825
  Transmission Date: 20080115
  Serious: Yes (Hospitalization)
  Sender: FDA-Public Use
  Company Number: US-ASTRAZENECA-2006UW15578

PATIENT
  Age: 57 Year
  Sex: Female

DRUGS (6)
  1. SEROQUEL [Suspect]
     Indication: BIPOLAR DISORDER
     Route: 048
  2. SEROQUEL [Suspect]
     Dosage: 300 MG IN A.M. AND 600 MG HS
     Route: 048
  3. LEXAPRO [Concomitant]
     Dosage: 20 MG/1 1/2 QD
  4. LAMICTAL [Concomitant]
  5. NEURONTIN [Concomitant]
     Dosage: 30 MG IN A.M. AND 60 MG HS
  6. WELLBUTRIN XL [Concomitant]
     Route: 048

REACTIONS (2)
  - BLOOD GLUCOSE INCREASED [None]
  - CONFUSIONAL STATE [None]
